FAERS Safety Report 6110275-9 (Version None)
Quarter: 2009Q1

REPORT INFORMATION
  Report Type: 
  Country: None (occurrence: None)
  Receive Date: 20090310
  Receipt Date: 20090226
  Transmission Date: 20090719
  Serious: Yes (Hospitalization, Other)
  Sender: FDA-Public Use
  Company Number: US-ROCHE-611180

PATIENT
  Sex: Male
  Weight: 75.3 kg

DRUGS (1)
  1. CAPECITABINE [Suspect]
     Indication: METASTATIC GASTRIC CANCER
     Dosage: 1000 MG IN MORNING AND 1000 MG IN EVENING
     Route: 048
     Dates: start: 20081201, end: 20090115

REACTIONS (6)
  - ABASIA [None]
  - ASTHENIA [None]
  - CATHETER SITE INFECTION [None]
  - FALL [None]
  - GASTRIC INFECTION [None]
  - MALAISE [None]
